FAERS Safety Report 15033065 (Version 1)
Quarter: 2018Q3

REPORT INFORMATION
  Report Type: Spontaneous
  Country: US (occurrence: US)
  Receive Date: 20180619
  Receipt Date: 20180619
  Transmission Date: 20181010
  Serious: No
  Sender: FDA-Public Use
  Company Number: US-AVADEL SPECIALTY PHARMACEUTICALS, LLC-2018AVA00033

PATIENT
  Age: 17 Year
  Sex: Female

DRUGS (1)
  1. NOCTIVA [Suspect]
     Active Substance: DESMOPRESSIN ACETATE
     Indication: ENURESIS
     Dosage: 1.66 ?G, 1X/DAY AT NIGHT
     Route: 045

REACTIONS (5)
  - Off label use [Unknown]
  - Nasal discomfort [Unknown]
  - Nausea [Unknown]
  - Instillation site discomfort [None]
  - Instillation site pain [None]
